FAERS Safety Report 8299340-8 (Version None)
Quarter: 2012Q2

REPORT INFORMATION
  Report Type: 
  Country: None (occurrence: None)
  Receive Date: 20120419
  Receipt Date: 20120409
  Transmission Date: 20120825
  Serious: Yes (Hospitalization)
  Sender: FDA-Public Use
  Company Number: US-ELI_LILLY_AND_COMPANY-US201204004542

PATIENT
  Sex: Male

DRUGS (2)
  1. ADCIRCA [Suspect]
     Dosage: UNK
  2. TYVASO [Concomitant]
     Indication: PULMONARY ARTERIAL HYPERTENSION
     Dosage: 54 UG, QID
     Route: 055
     Dates: start: 20110809

REACTIONS (2)
  - PULMONARY HAEMORRHAGE [None]
  - PNEUMONIA [None]
